FAERS Safety Report 7533668-1 (Version None)
Quarter: 2011Q2

REPORT INFORMATION
  Report Type: 
  Country: None (occurrence: None)
  Receive Date: 20110608
  Receipt Date: 20060328
  Transmission Date: 20111010
  Serious: Yes (Hospitalization, Other)
  Sender: FDA-Public Use
  Company Number: PHMT2005CA00658

PATIENT
  Sex: Female

DRUGS (8)
  1. EFFEXOR XR [Concomitant]
     Dosage: 150 MG, QD
     Route: 048
  2. CLOZAPINE [Suspect]
     Indication: MAJOR DEPRESSION
     Dosage: 150 MG, QID4SDO
     Route: 048
     Dates: start: 20000616
  3. PROLOPRIM [Concomitant]
     Dosage: 200/50 TID PO
     Route: 048
  4. CALCIUM CARBONATE [Concomitant]
     Dosage: 1000 MG, QD
     Route: 048
  5. CENTRUM FORTE [Concomitant]
     Dosage: OD
     Route: 048
  6. VITAMIN D [Concomitant]
     Dosage: 500 IU, QD
     Route: 048
  7. ASAPHEN [Concomitant]
     Dosage: 80 MG, QD
     Route: 048
  8. EVISTA [Concomitant]
     Dosage: 60 MG, QD
     Route: 048

REACTIONS (2)
  - FALL [None]
  - HIP FRACTURE [None]
